FAERS Safety Report 10519537 (Version 2)
Quarter: 2014Q4

REPORT INFORMATION
  Report Type: Spontaneous
  Country: IT (occurrence: IT)
  Receive Date: 20141015
  Receipt Date: 20141114
  Transmission Date: 20150528
  Serious: Yes (Hospitalization)
  Sender: FDA-Public Use
  Company Number: IT-PFIZER INC-2014281115

PATIENT
  Age: 43 Year
  Sex: Female

DRUGS (2)
  1. HALCION [Suspect]
     Active Substance: TRIAZOLAM
     Indication: MAJOR DEPRESSION
     Dosage: UNK
     Route: 048
     Dates: start: 20140703
  2. HALCION [Suspect]
     Active Substance: TRIAZOLAM
     Dosage: 20 UNK, UNK
     Route: 048
     Dates: start: 20140920, end: 20140920

REACTIONS (4)
  - Anxiety [Recovered/Resolved]
  - Drug abuse [Recovered/Resolved]
  - Bradycardia [Recovered/Resolved]
  - Overdose [Recovered/Resolved]

NARRATIVE: CASE EVENT DATE: 20140920
